FAERS Safety Report 9783447 (Version 2)
Quarter: 2013Q4

REPORT INFORMATION
  Report Type: Spontaneous
  Country: FR (occurrence: FR)
  Receive Date: 20131226
  Receipt Date: 20131231
  Transmission Date: 20140711
  Serious: Yes (Life-Threatening)
  Sender: FDA-Public Use
  Company Number: FR-PFIZER INC-2013365673

PATIENT
  Age: 66 Year
  Sex: Male

DRUGS (6)
  1. LYRICA [Suspect]
     Indication: BACK PAIN
     Dosage: 50 MG, 2X/DAY
     Route: 048
     Dates: start: 20131212, end: 20131213
  2. MIANSERIN ARROW [Suspect]
     Indication: DEPRESSION
     Dosage: 30 MG, DAILY
     Dates: start: 20131212, end: 20131212
  3. PARACETAMOL [Concomitant]
     Indication: NEURALGIA
     Dosage: 1 G, 4X/DAY
  4. CONTRAMAL [Concomitant]
     Indication: NEURALGIA
     Dosage: UNK
     Dates: start: 20131212
  5. FELDENE [Concomitant]
     Indication: NEURALGIA
     Dosage: UNK
     Route: 030
     Dates: start: 20131206, end: 20131211
  6. LAROXYL [Concomitant]
     Indication: NEURALGIA
     Dosage: UNK
     Dates: start: 20131206, end: 20131211

REACTIONS (5)
  - Malaise [Recovered/Resolved]
  - Loss of consciousness [Recovered/Resolved]
  - Convulsion [Recovered/Resolved]
  - Cardio-respiratory arrest [Recovered/Resolved]
  - Sinus bradycardia [Recovered/Resolved]
